FAERS Safety Report 23494742 (Version 2)
Quarter: 2024Q1

REPORT INFORMATION
  Report Type: Spontaneous
  Country: US (occurrence: US)
  Receive Date: 20240207
  Receipt Date: 20240319
  Transmission Date: 20240410
  Serious: No
  Sender: FDA-Public Use
  Company Number: US-ALKERMES INC.-ALK-2024-000221

PATIENT
  Age: 40 Year
  Sex: Male
  Weight: 117.91 kg

DRUGS (7)
  1. VIVITROL [Suspect]
     Active Substance: NALTREXONE
     Indication: Substance use disorder
     Dosage: 380 MILLIGRAM, Q3WK
     Route: 065
     Dates: start: 20240124, end: 20240222
  2. NICOTINE TRANSDERMAL SYSTEM [Concomitant]
     Active Substance: NICOTINE
     Indication: Nicotine dependence
     Dosage: 21 MILLIGRAM, QD
     Route: 062
     Dates: start: 20240124
  3. NICORETTE [Concomitant]
     Active Substance: NICOTINE
     Indication: Nicotine dependence
     Dosage: 4 MILLIGRAM
     Dates: start: 20240124
  4. BUPROPION HYDROCHLORIDE XL [Concomitant]
     Active Substance: BUPROPION HYDROCHLORIDE
     Indication: Substance use disorder
     Dosage: 450 MILLIGRAM, QD
     Route: 048
  5. HYDROXYZINE [Concomitant]
     Active Substance: HYDROXYZINE HYDROCHLORIDE
     Indication: Sleep disorder
     Dosage: 25 MILLIGRAM, QD
     Route: 048
     Dates: start: 20240112
  6. HYDROXYZINE [Concomitant]
     Active Substance: HYDROXYZINE HYDROCHLORIDE
     Indication: Anxiety
  7. LISINOPRIL [Concomitant]
     Active Substance: LISINOPRIL
     Indication: Hypertension
     Dosage: 10 MILLIGRAM, QD
     Route: 048
     Dates: start: 20240112

REACTIONS (1)
  - Product prescribing issue [Recovered/Resolved]

NARRATIVE: CASE EVENT DATE: 20240124
